FAERS Safety Report 5070095-3 (Version None)
Quarter: 2006Q3

REPORT INFORMATION
  Report Type: 
  Country: None (occurrence: None)
  Receive Date: 20060731
  Receipt Date: 20060720
  Transmission Date: 20061208
  Serious: Yes (Death, Hospitalization)
  Sender: FDA-Public Use
  Company Number: GXKR2006JP04220

PATIENT
  Age: 49 Year
  Sex: Male

DRUGS (2)
  1. AZATHIOPRINE [Suspect]
     Indication: COLITIS ULCERATIVE
  2. PREDNISOLONE [Suspect]
     Indication: COLITIS ULCERATIVE

REACTIONS (15)
  - BLOOD GLUCOSE INCREASED [None]
  - BRAIN STEM SYNDROME [None]
  - COMA [None]
  - CONFUSIONAL STATE [None]
  - CRYPTOCOCCOSIS [None]
  - DEPRESSED LEVEL OF CONSCIOUSNESS [None]
  - DYSURIA [None]
  - ENCEPHALITIS [None]
  - ERECTILE DYSFUNCTION [None]
  - GAIT DISTURBANCE [None]
  - INFECTION IN AN IMMUNOCOMPROMISED HOST [None]
  - MENINGITIS CRYPTOCOCCAL [None]
  - MYELITIS [None]
  - NAUSEA [None]
  - RESPIRATORY ARREST [None]
